FAERS Safety Report 8173906-8 (Version None)
Quarter: 2012Q1

REPORT INFORMATION
  Report Type: 
  Country: None (occurrence: None)
  Receive Date: 20120229
  Receipt Date: 20120220
  Transmission Date: 20120608
  Serious: Yes (Other)
  Sender: FDA-Public Use
  Company Number: CA-ELI_LILLY_AND_COMPANY-CA201202006044

PATIENT
  Age: 74 Year
  Sex: Female

DRUGS (8)
  1. PANTOPRAZOLE [Concomitant]
  2. HYDROMORPHONE HCL [Concomitant]
  3. CARBOCAL D [Concomitant]
  4. PREDNISONE TAB [Concomitant]
  5. EURO FOLIC [Concomitant]
  6. FORTEO [Suspect]
     Indication: OSTEOPOROSIS
     Dosage: 20 UG, QD
     Route: 058
     Dates: start: 20111223
  7. VITAMIN D [Concomitant]
  8. METHOTREXATE [Concomitant]

REACTIONS (2)
  - NAUSEA [None]
  - LIMB OPERATION [None]
